FAERS Safety Report 8054369-X (Version None)
Quarter: 2012Q1

REPORT INFORMATION
  Report Type: 
  Country: None (occurrence: None)
  Receive Date: 20120118
  Receipt Date: 20120116
  Transmission Date: 20120608
  Serious: Yes (Other)
  Sender: FDA-Public Use
  Company Number: PHHY2012NL003554

PATIENT
  Sex: Male

DRUGS (11)
  1. PREDNISONE [Concomitant]
  2. DILANORM [Concomitant]
  3. ABIRATERON ACETATE [Concomitant]
  4. ZOMETA [Suspect]
     Indication: METASTASES TO PROSTATE
     Dosage: 4 MG/100 ML IN 20 MINUTES 1X PER 28 DAYS
     Route: 042
  5. ZOMETA [Suspect]
     Dosage: 4 MG/100 ML IN 20 MINUTES 1X PER 28 DAYS
     Route: 042
     Dates: start: 20111219
  6. ZOMETA [Suspect]
     Dosage: 4 MG/100 ML IN 20 MINUTES 1X PER 28 DAYS
     Route: 042
     Dates: start: 20120116
  7. VITAMIN D [Concomitant]
  8. ZOMETA [Suspect]
     Dosage: 4 MG/100 ML IN 20 MINUTES 1X PER 28 DAYS
     Route: 042
     Dates: start: 20100726
  9. AVODART [Concomitant]
  10. CALCIUM [Concomitant]
  11. MOLAXEL [Concomitant]

REACTIONS (2)
  - ALTERED STATE OF CONSCIOUSNESS [None]
  - FATIGUE [None]
